FAERS Safety Report 16884082 (Version 1)
Quarter: 2019Q4

REPORT INFORMATION
  Report Type: Spontaneous
  Country: US (occurrence: US)
  Receive Date: 20190808
  Receipt Date: 20190808
  Transmission Date: 20200122
  Serious: Yes (Other)
  Sender: FDA-Public Use
  Company Number: None

PATIENT
  Age: 58 Year
  Sex: Female

DRUGS (12)
  1. TIMOLOL. [Concomitant]
     Active Substance: TIMOLOL
  2. TUMERIC [Concomitant]
     Active Substance: HERBALS\TURMERIC
  3. LISINOPRIL. [Concomitant]
     Active Substance: LISINOPRIL
  4. NAPROREYN 375MG [Concomitant]
  5. CVS LUBRICANT EYE DROPS [Suspect]
     Active Substance: CARBOXYMETHYLCELLULOSE SODIUM
     Indication: PRODUCT USED FOR UNKNOWN INDICATION
     Dosage: ?          OTHER FREQUENCY:4 - 5 TIMES A DAY;?
     Route: 047
  6. GINGER TEA [Concomitant]
  7. BRAZUPEM 10MG [Concomitant]
  8. ATORVASTATIN [Concomitant]
     Active Substance: ATORVASTATIN
  9. WOMENS CENTRUM SILVER 55+ [Concomitant]
  10. CALTRATE 600 +D3 [Concomitant]
  11. LOVOTHYROXIN [Concomitant]
  12. LIDOCAINE. [Concomitant]
     Active Substance: LIDOCAINE

REACTIONS (4)
  - Recalled product [None]
  - Vision blurred [None]
  - Lacrimation increased [None]
  - Headache [None]
